FAERS Safety Report 5015055-3 (Version None)
Quarter: 2006Q2

REPORT INFORMATION
  Report Type: 
  Country: None (occurrence: None)
  Receive Date: 20060414
  Receipt Date: 20060110
  Transmission Date: 20061013
  Serious: No
  Sender: FDA-Public Use
  Company Number: 2006SP000155

PATIENT
  Age: 87 Year
  Sex: Male
  Weight: 58.9676 kg

DRUGS (15)
  1. LUNESTA [Suspect]
     Indication: INSOMNIA
     Dosage: 2 MG; ORAL
     Route: 048
     Dates: start: 20051228
  2. LEVOTHYROXINE SODIUM [Concomitant]
  3. SENOKOT [Concomitant]
  4. ADVAIR DISKUS 100/50 [Concomitant]
  5. MIACALCIN [Concomitant]
  6. CENTRUM SILVER [Concomitant]
  7. TYLENOL (CAPLET) [Concomitant]
  8. ALEVE (CAPLET) [Concomitant]
  9. ASPIRIN [Concomitant]
  10. NEXIUM [Concomitant]
  11. NASONEX [Concomitant]
  12. HYDROXYZINE [Concomitant]
  13. ZOLOFT [Concomitant]
  14. ZYRTEC [Concomitant]
  15. COD-LIVER OIL [Concomitant]

REACTIONS (1)
  - INSOMNIA [None]
